FAERS Safety Report 8234327-2 (Version None)
Quarter: 2012Q1

REPORT INFORMATION
  Report Type: 
  Country: None (occurrence: None)
  Receive Date: 20120326
  Receipt Date: 20120321
  Transmission Date: 20120608
  Serious: Yes (Other)
  Sender: FDA-Public Use
  Company Number: US-JNJFOC-20120310512

PATIENT
  Sex: Female

DRUGS (2)
  1. LEVAQUIN [Suspect]
     Indication: COUGH
     Route: 048
     Dates: start: 20120131, end: 20120201
  2. PREDNISONE TAB [Suspect]
     Indication: COUGH
     Route: 048
     Dates: start: 20120131, end: 20120201

REACTIONS (2)
  - JOINT SWELLING [None]
  - BONE DISORDER [None]
